FAERS Safety Report 22323786 (Version 1)
Quarter: 2023Q2

REPORT INFORMATION
  Report Type: Spontaneous
  Country: US (occurrence: None)
  Receive Date: 20230512
  Receipt Date: 20230512
  Transmission Date: 20230722
  Serious: Yes (Other)
  Sender: FDA-Public Use
  Company Number: None

PATIENT
  Age: 76 Year
  Sex: Female
  Weight: 103.5 kg

DRUGS (18)
  1. ACETAMINOPHEN\HYDROCODONE [Suspect]
     Active Substance: ACETAMINOPHEN\HYDROCODONE
     Indication: Back pain
     Dosage: OTHER QUANTITY : 130 TABLET(S);?FREQUENCY : EVERY 4 HOURS;?
     Route: 048
     Dates: start: 20230414, end: 20230512
  2. MIRABEGRON [Concomitant]
     Active Substance: MIRABEGRON
  3. FUROSEMIDE [Concomitant]
     Active Substance: FUROSEMIDE
  4. ASPIRIN [Concomitant]
     Active Substance: ASPIRIN
  5. DULAGLUTIDE [Concomitant]
     Active Substance: DULAGLUTIDE
  6. CARVEDILOL [Concomitant]
     Active Substance: CARVEDILOL
  7. CYANOCOBALAMIN [Concomitant]
     Active Substance: CYANOCOBALAMIN
  8. VITAMIN B12 [Concomitant]
     Active Substance: CYANOCOBALAMIN
  9. ROSUVASTATIN [Concomitant]
     Active Substance: ROSUVASTATIN
  10. LEVOTHYROXINE [Concomitant]
     Active Substance: LEVOTHYROXINE
  11. LOSARTAN [Concomitant]
     Active Substance: LOSARTAN
  12. EZETIMIBE [Concomitant]
     Active Substance: EZETIMIBE
  13. DULOXETINE [Concomitant]
     Active Substance: DULOXETINE
  14. CLOPIDOGREL [Concomitant]
     Active Substance: CLOPIDOGREL BISULFATE
  15. INSULIN LISPRO [Concomitant]
     Active Substance: INSULIN LISPRO
  16. ONDANSETRON [Concomitant]
     Active Substance: ONDANSETRON
  17. NITROGLYCERIN [Concomitant]
     Active Substance: NITROGLYCERIN
  18. MOTRIN [Concomitant]
     Active Substance: IBUPROFEN

REACTIONS (5)
  - Product dispensing error [None]
  - Incorrect dose administered [None]
  - Inadequate analgesia [None]
  - Emotional distress [None]
  - Malaise [None]

NARRATIVE: CASE EVENT DATE: 20230414
